FAERS Safety Report 11211910 (Version 1)
Quarter: 2015Q2

REPORT INFORMATION
  Report Type: Spontaneous
  Country: TW (occurrence: TW)
  Receive Date: 20150623
  Receipt Date: 20150623
  Transmission Date: 20150821
  Serious: Yes (Life-Threatening, Hospitalization)
  Sender: FDA-Public Use
  Company Number: TW-MYLANLABS-2015M1020362

PATIENT

DRUGS (1)
  1. ALPRAZOLAM. [Suspect]
     Active Substance: ALPRAZOLAM
     Indication: OVERDOSE
     Dosage: 30 TABLETS OF 0.5 MG
     Route: 048

REACTIONS (3)
  - Coma [Recovering/Resolving]
  - Pulmonary embolism [Recovering/Resolving]
  - Intentional overdose [Recovering/Resolving]
